FAERS Safety Report 13007211 (Version 1)
Quarter: 2016Q4

REPORT INFORMATION
  Report Type: Spontaneous
  Country: US (occurrence: US)
  Receive Date: 20161207
  Receipt Date: 20161207
  Transmission Date: 20170207
  Serious: Yes (Hospitalization)
  Sender: FDA-Public Use
  Company Number: US-MYLANLABS-2016M1053125

PATIENT

DRUGS (6)
  1. CISPLATIN. [Concomitant]
     Active Substance: CISPLATIN
     Indication: SQUAMOUS CELL CARCINOMA OF LUNG
     Dosage: 60 MG/M2 DAY 1, EVERY 3 WEEKS FOR 4 CYCLES
     Route: 065
     Dates: start: 20121212, end: 20130220
  2. GEMCITABINE [Suspect]
     Active Substance: GEMCITABINE\GEMCITABINE HYDROCHLORIDE
     Indication: SQUAMOUS CELL CARCINOMA OF LUNG
     Dosage: 1000MG/M2 ON DAY 1 AND 8, EVERY 3 WEEKS FOR 4 CYCLES
     Route: 065
     Dates: start: 20121212, end: 20130220
  3. GEMCITABINE [Suspect]
     Active Substance: GEMCITABINE\GEMCITABINE HYDROCHLORIDE
     Indication: LARYNGEAL SQUAMOUS CELL CARCINOMA
     Dosage: 1000MG/M2 ON DAY 1 AND 8, EVERY 3 WEEKS FOR 4 CYCLES
     Route: 065
     Dates: start: 20121212, end: 20130220
  4. ROSUVASTATIN. [Concomitant]
     Active Substance: ROSUVASTATIN
     Indication: HYPERLIPIDAEMIA
     Route: 065
  5. CISPLATIN. [Concomitant]
     Active Substance: CISPLATIN
     Indication: LARYNGEAL SQUAMOUS CELL CARCINOMA
     Dosage: 60 MG/M2 DAY 1, EVERY 3 WEEKS FOR 4 CYCLES
     Route: 065
     Dates: start: 20121212, end: 20130220
  6. ADZOPIP [Concomitant]
     Indication: PNEUMONIA ASPIRATION
     Route: 065

REACTIONS (3)
  - Myositis [Recovering/Resolving]
  - Pseudocellulitis [Recovering/Resolving]
  - Recall phenomenon [Recovering/Resolving]
